FAERS Safety Report 4686484-2 (Version None)
Quarter: 2005Q2

REPORT INFORMATION
  Report Type: 
  Country: None (occurrence: None)
  Receive Date: 20050606
  Receipt Date: 20050523
  Transmission Date: 20051028
  Serious: Yes (Hospitalization)
  Sender: FDA-Public Use
  Company Number: 2005BI008834

PATIENT
  Age: 46 Year
  Sex: Female

DRUGS (6)
  1. AVONEX LYOPHILIZED [Suspect]
     Indication: MULTIPLE SCLEROSIS
     Dosage: 30 UG;QW; IM
     Route: 030
     Dates: start: 20030513
  2. ASPIRIN [Concomitant]
  3. ADVICOR [Concomitant]
  4. NITROGLYCERIN [Concomitant]
  5. METOPROLOL [Concomitant]
  6. PLAVIX [Concomitant]

REACTIONS (1)
  - CORONARY ARTERY OCCLUSION [None]
